FAERS Safety Report 11125553 (Version 1)
Quarter: 2015Q2

REPORT INFORMATION
  Report Type: Spontaneous
  Country: US (occurrence: US)
  Receive Date: 20150520
  Receipt Date: 20150520
  Transmission Date: 20150821
  Serious: Yes (Other)
  Sender: FDA-Public Use
  Company Number: US-PFIZER INC-2015168887

PATIENT
  Sex: Male

DRUGS (1)
  1. IBRANCE [Suspect]
     Active Substance: PALBOCICLIB
     Indication: BREAST CANCER
     Dosage: UNK

REACTIONS (4)
  - Thrombocytopenia [Unknown]
  - Product use issue [Unknown]
  - Diarrhoea [Unknown]
  - Neutropenia [Unknown]
